FAERS Safety Report 22988657 (Version 12)
Quarter: 2025Q2

REPORT INFORMATION
  Report Type: Report from Study
  Country: CO (occurrence: CO)
  Receive Date: 20230926
  Receipt Date: 20250506
  Transmission Date: 20250717
  Serious: Yes (Hospitalization, Other)
  Sender: GLAXOSMITHKLINE
  Company Number: CO-GLAXOSMITHKLINE-CO2023AMR056626

PATIENT

DRUGS (2)
  1. MEPOLIZUMAB [Suspect]
     Active Substance: MEPOLIZUMAB
     Indication: Asthma
     Dosage: 100 MG, MO
     Dates: start: 20220813
  2. MEPOLIZUMAB [Suspect]
     Active Substance: MEPOLIZUMAB
     Dosage: 100 MG, MO
     Dates: start: 20220913

REACTIONS (26)
  - Asthma [Recovered/Resolved]
  - Pneumonia [Recovered/Resolved]
  - Productive cough [Not Recovered/Not Resolved]
  - Cough [Not Recovered/Not Resolved]
  - Dyspnoea [Not Recovered/Not Resolved]
  - Rotator cuff syndrome [Recovered/Resolved]
  - Pseudofracture [Unknown]
  - Loss of personal independence in daily activities [Not Recovered/Not Resolved]
  - Fatigue [Unknown]
  - Dyspnoea exertional [Not Recovered/Not Resolved]
  - Puncture site pain [Unknown]
  - Puncture site erythema [Unknown]
  - Administration site bruise [Recovered/Resolved]
  - Injection site pain [Recovered/Resolved]
  - Pain [Not Recovered/Not Resolved]
  - Mass [Not Recovered/Not Resolved]
  - Conjunctivitis [Not Recovered/Not Resolved]
  - Dacryostenosis acquired [Not Recovered/Not Resolved]
  - Eye pain [Not Recovered/Not Resolved]
  - Eye discharge [Not Recovered/Not Resolved]
  - Urticaria [Not Recovered/Not Resolved]
  - Urinary tract infection [Not Recovered/Not Resolved]
  - Aneurysm [Not Recovered/Not Resolved]
  - Electrocardiogram abnormal [Not Recovered/Not Resolved]
  - Respiratory tract congestion [Not Recovered/Not Resolved]
  - Headache [Not Recovered/Not Resolved]

NARRATIVE: CASE EVENT DATE: 20240101
